FAERS Safety Report 6240688-6 (Version None)
Quarter: 2009Q2

REPORT INFORMATION
  Report Type: 
  Country: None (occurrence: None)
  Receive Date: 20090623
  Receipt Date: 20090305
  Transmission Date: 20091009
  Serious: No
  Sender: FDA-Public Use
  Company Number: US-ASTRAZENECA-2009UW02175

PATIENT
  Age: 78 Year
  Sex: Female
  Weight: 79.8 kg

DRUGS (15)
  1. PULMICORT FLEXHALER [Suspect]
     Indication: SARCOIDOSIS
     Route: 055
     Dates: start: 20090119
  2. SYMBICORT [Suspect]
     Indication: SARCOIDOSIS
     Dosage: 320 UG TWO TIMES  A DAY
     Route: 055
  3. SYMBICORT [Suspect]
     Dosage: 640 UG TWO TIMES  A DAY
     Route: 055
  4. SYMBICORT [Suspect]
     Dosage: 80 UG
     Route: 055
  5. NEXIUM [Concomitant]
     Route: 048
  6. GLUCOSAMINE [Concomitant]
  7. AVAPRO [Concomitant]
  8. LOVAZA [Concomitant]
  9. ALLEGRA [Concomitant]
  10. CENTRUM [Concomitant]
  11. COMBIVENT [Concomitant]
  12. DUONEB [Concomitant]
  13. VITAMIN B COMPLEX CAP [Concomitant]
  14. POTASSIUM CHLORIDE [Concomitant]
  15. ACIDOPHYLLIS [Concomitant]

REACTIONS (6)
  - COUGH [None]
  - DRY THROAT [None]
  - DYSPHONIA [None]
  - INSOMNIA [None]
  - THROAT IRRITATION [None]
  - WHEEZING [None]
